FAERS Safety Report 4351857-4 (Version None)
Quarter: 2004Q2

REPORT INFORMATION
  Report Type: 
  Country: None (occurrence: None)
  Receive Date: 20040429
  Receipt Date: 20040106
  Transmission Date: 20050107
  Serious: No
  Sender: FDA-Public Use
  Company Number: 2004-112165-NL

PATIENT
  Age: 20 Year
  Sex: Female
  Weight: 72.7 kg

DRUGS (7)
  1. NUVARING [Suspect]
     Indication: CONTRACEPTION
     Dosage: DF DAILY VAGINAL
     Route: 067
     Dates: start: 20030201
  2. ZOLOFT [Concomitant]
  3. VERAPAMIL [Concomitant]
  4. PIROXICAM [Concomitant]
  5. RIBOFLAVIN [Concomitant]
  6. MONISTAT [Concomitant]
  7. VITAMINS NOS [Concomitant]

REACTIONS (6)
  - COMPLICATION OF DEVICE REMOVAL [None]
  - DEVICE FAILURE [None]
  - MEDICAL DEVICE COMPLICATION [None]
  - MEDICAL DEVICE DISCOMFORT [None]
  - PRURITUS [None]
  - VAGINAL BURNING SENSATION [None]
